FAERS Safety Report 9849784 (Version 2)
Quarter: 2014Q1

REPORT INFORMATION
  Report Type: Spontaneous
  Country: JP (occurrence: JP)
  Receive Date: 20140128
  Receipt Date: 20140128
  Transmission Date: 20141002
  Serious: Yes (Death, Hospitalization)
  Sender: FDA-Public Use
  Company Number: JP-SA-THYM-1002109

PATIENT
  Age: 69 Year
  Sex: Female
  Weight: 52 kg

DRUGS (13)
  1. THYMOGLOBULINE [Suspect]
     Indication: APLASTIC ANAEMIA
     Dosage: 3.75 MG/KG, QD
     Route: 042
     Dates: start: 20100915, end: 20100919
  2. PREDNISOLONE [Concomitant]
     Indication: PROPHYLAXIS
     Dosage: 50 MG, QD
     Route: 048
     Dates: start: 20100920, end: 20100928
  3. PREDNISOLONE [Concomitant]
     Indication: PROPHYLAXIS
     Dosage: 25 MG, QD
     Route: 048
     Dates: start: 20100929, end: 20101005
  4. PREDNISOLONE [Concomitant]
     Indication: PROPHYLAXIS
     Dosage: 10 MG, QD
     Route: 048
     Dates: start: 20101006, end: 20101012
  5. PREDNISOLONE [Concomitant]
     Indication: PROPHYLAXIS
     Dosage: 5 MG, QD
     Route: 048
     Dates: start: 20101014, end: 20101020
  6. PREDNISOLONE [Concomitant]
     Indication: PROPHYLAXIS
     Dosage: 5 MG, QOD
     Route: 048
     Dates: start: 20101021, end: 20101027
  7. LEVOFLOXACIN [Concomitant]
     Indication: PROPHYLAXIS
     Dosage: 500 MG, QD
     Route: 065
     Dates: start: 20100915, end: 20101027
  8. FLUCONAZOLE [Concomitant]
     Indication: PROPHYLAXIS
     Dosage: 200 MG, QD
     Route: 065
     Dates: start: 20100915, end: 20100922
  9. CICLOSPORIN [Concomitant]
     Indication: APLASTIC ANAEMIA
     Dosage: 100 MG, BID
     Route: 065
     Dates: start: 20100510, end: 20101031
  10. METHYLPREDNISOLONE SODIUM SUCCINATE [Concomitant]
     Indication: PREMEDICATION
     Dosage: 125 MG, QD
     Route: 065
     Dates: start: 20100915, end: 20100919
  11. DIPHENHYDRAMINE HYDROCHLORIDE [Concomitant]
     Indication: PREMEDICATION
     Dosage: 30 MG, QD
     Route: 065
     Dates: start: 20100915, end: 20100919
  12. PARACETAMOL [Concomitant]
     Indication: PREMEDICATION
     Dosage: 300 MG, QD
     Route: 065
     Dates: start: 20100915, end: 20100919
  13. ACICLOVIR [Concomitant]
     Indication: PROPHYLAXIS
     Dosage: 200 MG, QD
     Route: 065

REACTIONS (5)
  - Post transplant lymphoproliferative disorder [Fatal]
  - Acute hepatic failure [Fatal]
  - Renal failure acute [Fatal]
  - Cytomegalovirus infection [Recovered/Resolved]
  - Stenotrophomonas sepsis [Not Recovered/Not Resolved]
